FAERS Safety Report 13546417 (Version 1)
Quarter: 2017Q2

REPORT INFORMATION
  Report Type: Spontaneous
  Country: FR (occurrence: FR)
  Receive Date: 20170515
  Receipt Date: 20170515
  Transmission Date: 20170830
  Serious: Yes (Hospitalization, Other)
  Sender: FDA-Public Use
  Company Number: FR-BAXTER-2017BAX019971

PATIENT
  Age: 25 Year
  Sex: Female

DRUGS (12)
  1. LOVENOX [Concomitant]
     Active Substance: ENOXAPARIN SODIUM
     Indication: PRODUCT USED FOR UNKNOWN INDICATION
     Route: 065
  2. ENDOXAN 1000 MG, POUDRE POUR SOLUTION INJECTABLE [Suspect]
     Active Substance: CYCLOPHOSPHAMIDE
     Dosage: SECOND CYCLE
     Route: 042
     Dates: start: 20170309, end: 20170309
  3. CORTANCYL [Concomitant]
     Active Substance: PREDNISONE
     Indication: PRODUCT USED FOR UNKNOWN INDICATION
     Route: 065
  4. BACTRIM [Concomitant]
     Active Substance: SULFAMETHOXAZOLE\TRIMETHOPRIM
     Indication: PRODUCT USED FOR UNKNOWN INDICATION
     Route: 065
  5. ENDOXAN 1000 MG, POUDRE POUR SOLUTION INJECTABLE [Suspect]
     Active Substance: CYCLOPHOSPHAMIDE
     Indication: MIXED CONNECTIVE TISSUE DISEASE
     Dosage: FIRST CYCLE
     Route: 042
     Dates: start: 20170227, end: 20170227
  6. METHOTREXATE. [Suspect]
     Active Substance: METHOTREXATE
     Indication: MIXED CONNECTIVE TISSUE DISEASE
     Route: 065
     Dates: start: 2015
  7. PLAQUENIL [Suspect]
     Active Substance: HYDROXYCHLOROQUINE SULFATE
     Indication: MIXED CONNECTIVE TISSUE DISEASE
     Route: 065
  8. XANAX [Concomitant]
     Active Substance: ALPRAZOLAM
     Indication: PRODUCT USED FOR UNKNOWN INDICATION
     Route: 065
  9. DIFFU K [Concomitant]
     Active Substance: POTASSIUM CHLORIDE
     Indication: PRODUCT USED FOR UNKNOWN INDICATION
     Route: 065
  10. TOPALGIC (FRANCE) [Concomitant]
     Active Substance: TRAMADOL
     Indication: PRODUCT USED FOR UNKNOWN INDICATION
     Route: 065
  11. ZELITREX [Concomitant]
     Active Substance: VALACYCLOVIR HYDROCHLORIDE
     Indication: PRODUCT USED FOR UNKNOWN INDICATION
     Route: 065
  12. INEXIUM [Concomitant]
     Active Substance: ESOMEPRAZOLE
     Indication: PRODUCT USED FOR UNKNOWN INDICATION
     Route: 065

REACTIONS (10)
  - Meningitis aseptic [Unknown]
  - Mast cell activation syndrome [Unknown]
  - Chorioretinitis [Unknown]
  - Myopathy [Unknown]
  - Deafness neurosensory [Unknown]
  - Sepsis [Unknown]
  - Histiocytosis haematophagic [Not Recovered/Not Resolved]
  - Acute polyneuropathy [Unknown]
  - Septic shock [Unknown]
  - Deafness bilateral [Unknown]

NARRATIVE: CASE EVENT DATE: 20170313
